FAERS Safety Report 8976099 (Version 1)
Quarter: 2012Q4

REPORT INFORMATION
  Report Type: 
  Country: FR (occurrence: FR)
  Receive Date: 20121220
  Receipt Date: 20121220
  Transmission Date: 20130627
  Serious: Yes (Hospitalization)
  Sender: FDA-Public Use
  Company Number: PHHY2012FR115614

PATIENT
  Age: 87 Year
  Sex: Female

DRUGS (7)
  1. EXELON PATCH [Suspect]
     Dosage: 9500 ug per day
     Route: 062
     Dates: start: 20110606
  2. EXELON PATCH [Suspect]
     Dosage: 4.6 mg daily
  3. DEPAMIDE [Suspect]
     Route: 048
  4. METOPROLOL [Concomitant]
  5. BETASERC [Concomitant]
  6. INEXIUM//ESOMEPRAZOLE MAGNESIUM [Concomitant]
  7. MOVICOL [Concomitant]

REACTIONS (19)
  - Cardiac failure [Unknown]
  - Dyspnoea exertional [Unknown]
  - Bradycardia [Unknown]
  - Cardiac murmur [Unknown]
  - Dissociative fugue [Unknown]
  - Negative thoughts [Unknown]
  - Disorientation [Unknown]
  - Mood swings [Unknown]
  - Affect lability [Unknown]
  - Mental disorder [Unknown]
  - Migraine [Unknown]
  - Headache [Unknown]
  - Nausea [Unknown]
  - Paraesthesia [Unknown]
  - Facial neuralgia [Recovering/Resolving]
  - Vascular dementia [Unknown]
  - Nightmare [Recovering/Resolving]
  - Gait disturbance [Unknown]
  - Agitation [Recovered/Resolved]
